FAERS Safety Report 10297636 (Version 1)
Quarter: 2014Q3

REPORT INFORMATION
  Report Type: Spontaneous
  Country: BR (occurrence: BR)
  Receive Date: 20140711
  Receipt Date: 20140711
  Transmission Date: 20150326
  Serious: Yes (Life-Threatening, Hospitalization, Other)
  Sender: FDA-Public Use
  Company Number: BR-ELI_LILLY_AND_COMPANY-BR201407002854

PATIENT
  Sex: Female
  Weight: 52 kg

DRUGS (6)
  1. HUMULIN N [Suspect]
     Active Substance: INSULIN HUMAN
     Dosage: 16 IU, EACH EVENING
     Route: 058
     Dates: start: 2007
  2. SIMVASTATIN. [Concomitant]
     Active Substance: SIMVASTATIN
     Indication: BLOOD CHOLESTEROL
     Dosage: UNK, UNKNOWN
     Route: 065
  3. HUMULIN N [Suspect]
     Active Substance: INSULIN HUMAN
     Indication: TYPE 1 DIABETES MELLITUS
     Dosage: 26 IU, EACH MORNING
     Route: 058
     Dates: start: 2007
  4. HUMULIN N [Suspect]
     Active Substance: INSULIN HUMAN
     Dosage: 20 IU, QD
     Route: 058
     Dates: start: 2007
  5. HUMULIN R [Suspect]
     Active Substance: INSULIN HUMAN
     Indication: TYPE 1 DIABETES MELLITUS
     Dosage: 2 IU, TID
     Route: 058
     Dates: start: 2007
  6. HUMULIN R [Suspect]
     Active Substance: INSULIN HUMAN
     Dosage: 4 IU, TID
     Route: 058
     Dates: start: 2007

REACTIONS (9)
  - Renal disorder [Recovered/Resolved]
  - Hyperphagia [Not Recovered/Not Resolved]
  - Septic shock [Recovered/Resolved]
  - Ketoacidosis [Recovered/Resolved]
  - Hyperglycaemia [Not Recovered/Not Resolved]
  - Ingrowing nail [Unknown]
  - Pneumonia [Recovered/Resolved]
  - Injection site induration [Recovered/Resolved]
  - Coma [Recovered/Resolved]
